FAERS Safety Report 20793089 (Version 1)
Quarter: 2022Q2

REPORT INFORMATION
  Report Type: Spontaneous
  Country: US (occurrence: US)
  Receive Date: 20220506
  Receipt Date: 20220506
  Transmission Date: 20220721
  Serious: Yes (Other)
  Sender: FDA-Public Use
  Company Number: US-BRISTOL-MYERS SQUIBB COMPANY-2022-029590

PATIENT
  Age: 78 Year
  Sex: Female
  Weight: 78.018 kg

DRUGS (1)
  1. REVLIMID [Suspect]
     Active Substance: LENALIDOMIDE
     Indication: Product used for unknown indication
     Dosage: TAKE 1 CAPSULE BY MOUTH EVERYDAY ON DAYS 1-21 OF A 28 DAYS CYCLE
     Route: 048

REACTIONS (1)
  - Drug ineffective [Unknown]
